FAERS Safety Report 17862754 (Version 1)
Quarter: 2020Q2

REPORT INFORMATION
  Report Type: Spontaneous
  Country: US (occurrence: US)
  Receive Date: 20200604
  Receipt Date: 20200604
  Transmission Date: 20200714
  Serious: Yes (Other)
  Sender: FDA-Public Use
  Company Number: US-FOUNDATIONCONSUMERHC-2020-US-005905

PATIENT
  Age: 19 Year
  Sex: Female
  Weight: 78.93 kg

DRUGS (1)
  1. PLAN B ONE-STEP [Suspect]
     Active Substance: LEVONORGESTREL
     Indication: POST COITAL CONTRACEPTION
     Dosage: 1.5 MG X 3 DOSES
     Route: 048
     Dates: end: 20200302

REACTIONS (12)
  - Vaginal discharge [Not Recovered/Not Resolved]
  - Breast tenderness [Not Recovered/Not Resolved]
  - Back pain [Not Recovered/Not Resolved]
  - Menstruation delayed [Not Recovered/Not Resolved]
  - Pregnancy after post coital contraception [Unknown]
  - Nausea [Not Recovered/Not Resolved]
  - Menstrual disorder [Recovered/Resolved]
  - Drug ineffective [Unknown]
  - Vomiting [Not Recovered/Not Resolved]
  - Dyspepsia [Not Recovered/Not Resolved]
  - Foetal heart rate decreased [Recovered/Resolved]
  - Headache [Not Recovered/Not Resolved]

NARRATIVE: CASE EVENT DATE: 20190926
